FAERS Safety Report 8336611-0 (Version None)
Quarter: 2012Q2

REPORT INFORMATION
  Report Type: 
  Country: None (occurrence: None)
  Receive Date: 20120504
  Receipt Date: 20120427
  Transmission Date: 20120825
  Serious: Yes (Other)
  Sender: FDA-Public Use
  Company Number: BR-PFIZER INC-2009243198

PATIENT
  Age: 66 Year
  Sex: Female

DRUGS (4)
  1. XALATAN [Suspect]
     Dosage: 3 UG, ONE DROP IN EACH EYE ONCE DAILY
     Route: 047
     Dates: start: 20090720, end: 20120328
  2. XALATAN [Suspect]
     Indication: GLAUCOMA
     Dosage: UNK
     Route: 047
     Dates: start: 20050101
  3. CALCIUM [Concomitant]
     Indication: OSTEOPOROSIS PROPHYLAXIS
     Dosage: UNK
     Dates: start: 20080101
  4. ENALAPRIL MALEATE [Concomitant]
     Dosage: UNK
     Dates: start: 20080101

REACTIONS (2)
  - DRUG INEFFECTIVE [None]
  - INTRAOCULAR PRESSURE INCREASED [None]
